FAERS Safety Report 13642062 (Version 1)
Quarter: 2017Q2

REPORT INFORMATION
  Report Type: Spontaneous
  Country: DK (occurrence: DK)
  Receive Date: 20170612
  Receipt Date: 20170612
  Transmission Date: 20170830
  Serious: Yes (Other)
  Sender: FDA-Public Use
  Company Number: DK-SHIRE-DK201712119

PATIENT
  Age: 6 Year
  Sex: Male
  Weight: 23.5 kg

DRUGS (1)
  1. INTUNIV [Suspect]
     Active Substance: GUANFACINE HYDROCHLORIDE
     Indication: ATTENTION DEFICIT/HYPERACTIVITY DISORDER
     Dosage: 2 MG, 1X/DAY:QD
     Route: 048
     Dates: start: 20161007, end: 20161203

REACTIONS (3)
  - Sleep terror [Unknown]
  - Psychotic symptom [Unknown]
  - Tic [Unknown]

NARRATIVE: CASE EVENT DATE: 20161108
